FAERS Safety Report 7845700-6 (Version None)
Quarter: 2011Q4

REPORT INFORMATION
  Report Type: 
  Country: None (occurrence: None)
  Receive Date: 20111025
  Receipt Date: 20111017
  Transmission Date: 20120403
  Serious: Yes (Other)
  Sender: FDA-Public Use
  Company Number: GB-TEVA-306028ISR

PATIENT
  Age: 75 Year
  Sex: Female

DRUGS (1)
  1. LANSOPRAZOLE [Suspect]
     Route: 065

REACTIONS (1)
  - HYPONATRAEMIA [None]
